FAERS Safety Report 23528023 (Version 1)
Quarter: 2024Q1

REPORT INFORMATION
  Report Type: Spontaneous
  Country: CA (occurrence: CA)
  Receive Date: 20240215
  Receipt Date: 20240215
  Transmission Date: 20240410
  Serious: Yes (Hospitalization, Other)
  Sender: FDA-Public Use
  Company Number: CA-BAYER-2024A022891

PATIENT
  Age: 45 Year
  Sex: Female

DRUGS (2)
  1. ALEVE [Suspect]
     Active Substance: NAPROXEN SODIUM
  2. FLUIDSEMIDE [Concomitant]

REACTIONS (3)
  - Urticaria [Recovered/Resolved]
  - Documented hypersensitivity to administered product [Recovered/Resolved]
  - Fluid replacement [Recovered/Resolved]
